FAERS Safety Report 6659054-4 (Version None)
Quarter: 2010Q1

REPORT INFORMATION
  Report Type: 
  Country: None (occurrence: None)
  Receive Date: 20100330
  Receipt Date: 20100319
  Transmission Date: 20100710
  Serious: Yes (Hospitalization)
  Sender: FDA-Public Use
  Company Number: IT-PFIZER INC-2010036195

PATIENT
  Age: 23 Year
  Sex: Female

DRUGS (4)
  1. ZELDOX [Suspect]
     Indication: SCHIZOAFFECTIVE DISORDER
     Dosage: 120 MG, X/DAY
     Route: 048
     Dates: start: 20100202, end: 20100316
  2. LEPONEX ^NOVARTIS^ [Suspect]
     Indication: SCHIZOAFFECTIVE DISORDER
     Dosage: 325 MG, X/DAY
     Route: 048
     Dates: start: 20100202, end: 20100316
  3. LEPONEX ^NOVARTIS^ [Suspect]
     Dosage: UNK
  4. SURMONTIL [Suspect]
     Indication: SCHIZOAFFECTIVE DISORDER
     Dosage: 100 MG, X/DAY
     Dates: start: 20100202, end: 20100312

REACTIONS (1)
  - EPILEPSY [None]
